FAERS Safety Report 5765797-7 (Version None)
Quarter: 2008Q2

REPORT INFORMATION
  Report Type: 
  Country: None (occurrence: None)
  Receive Date: 20080611
  Receipt Date: 20080602
  Transmission Date: 20081010
  Serious: Yes (Hospitalization, Other)
  Sender: FDA-Public Use
  Company Number: US-ABBOTT-08P-163-0439983-00

PATIENT
  Sex: Female
  Weight: 66.7 kg

DRUGS (12)
  1. HUMIRA [Suspect]
     Indication: DRUG USE FOR UNKNOWN INDICATION
     Route: 058
     Dates: end: 20071201
  2. HUMIRA [Suspect]
     Dosage: 40MG EOW
     Route: 058
     Dates: start: 20080102, end: 20080213
  3. LEFLUNOMIDE [Concomitant]
     Indication: DRUG USE FOR UNKNOWN INDICATION
  4. METOPROLOL SUCCINATE [Concomitant]
     Indication: DRUG USE FOR UNKNOWN INDICATION
  5. LOSARTAN POTASSIUM [Concomitant]
     Indication: DRUG USE FOR UNKNOWN INDICATION
  6. CLOPIDOGREL [Concomitant]
     Indication: DRUG USE FOR UNKNOWN INDICATION
     Dates: start: 20080215
  7. ASPIRIN [Concomitant]
     Indication: DRUG USE FOR UNKNOWN INDICATION
     Dates: start: 20071001
  8. ESOMEPRAZOLE MAGNESIUM [Concomitant]
     Indication: DRUG USE FOR UNKNOWN INDICATION
  9. GLYBURIDE [Concomitant]
     Indication: DRUG USE FOR UNKNOWN INDICATION
  10. INSULIN GLARGINE [Concomitant]
     Indication: DRUG USE FOR UNKNOWN INDICATION
     Dosage: 38 UNITS EACH EVENING
  11. INSULIN ASPART [Concomitant]
     Indication: DRUG USE FOR UNKNOWN INDICATION
     Dosage: DOSE DETERIMINED ON CARB INTAKE
  12. PREGABALIN [Concomitant]
     Indication: PAIN IN EXTREMITY
     Dates: start: 20080215

REACTIONS (31)
  - AGRANULOCYTOSIS [None]
  - ANTIPHOSPHOLIPID SYNDROME [None]
  - ARTERIAL STENOSIS [None]
  - ARTERIAL STENOSIS LIMB [None]
  - ARTERIOSCLEROSIS [None]
  - BONE MARROW FAILURE [None]
  - BURNING SENSATION [None]
  - ERYTHROPOIESIS ABNORMAL [None]
  - FOETAL HAEMOGLOBIN INCREASED [None]
  - HAEMOGLOBIN INCREASED [None]
  - HEPATIC CYST [None]
  - ILL-DEFINED DISORDER [None]
  - KIDNEY FIBROSIS [None]
  - LUNG DISORDER [None]
  - LYMPHOCYTOSIS [None]
  - MEGAKARYOCYTES INCREASED [None]
  - MICROCYTOSIS [None]
  - NEUTROPENIA [None]
  - OEDEMA PERIPHERAL [None]
  - PAIN IN EXTREMITY [None]
  - PANCREATIC MASS [None]
  - PANCYTOPENIA [None]
  - PERIPHERAL ISCHAEMIA [None]
  - PLATELET COUNT DECREASED [None]
  - PLEURAL EFFUSION [None]
  - RENAL CYST [None]
  - SKIN DISCOLOURATION [None]
  - SPLENOMEGALY [None]
  - T-LYMPHOCYTE COUNT INCREASED [None]
  - VASCULAR INSUFFICIENCY [None]
  - WHITE BLOOD CELL COUNT DECREASED [None]
